FAERS Safety Report 6719170-5 (Version None)
Quarter: 2010Q2

REPORT INFORMATION
  Report Type: 
  Country: None (occurrence: None)
  Receive Date: 20100511
  Receipt Date: 20100511
  Transmission Date: 20101027
  Serious: Yes (Other)
  Sender: FDA-Public Use
  Company Number: None

PATIENT
  Sex: Female
  Weight: 13.6079 kg

DRUGS (1)
  1. TYLENOL INFANTS DROPS 80MG PER 0.8 ML  TYLENOL [Suspect]
     Indication: TEETHING
     Dosage: 0.8 X 2
     Dates: start: 20100429, end: 20100510

REACTIONS (2)
  - GASTROINTESTINAL DISORDER [None]
  - PRODUCT QUALITY ISSUE [None]
